FAERS Safety Report 9812781 (Version 1)
Quarter: 2014Q1

REPORT INFORMATION
  Report Type: Spontaneous
  Country: DE (occurrence: DE)
  Receive Date: 20140113
  Receipt Date: 20140113
  Transmission Date: 20141002
  Serious: Yes (Hospitalization)
  Sender: FDA-Public Use
  Company Number: DE-MYLANLABS-2014S1000283

PATIENT
  Age: 71 Year
  Sex: Female

DRUGS (5)
  1. METHOTREXATE [Suspect]
     Indication: RHEUMATOID ARTHRITIS
     Route: 048
  2. METHOTREXATE [Suspect]
     Indication: RHEUMATOID ARTHRITIS
     Route: 048
  3. VALSARTAN [Concomitant]
     Dosage: 320MG DAILY
     Route: 065
  4. ASPIRIN [Concomitant]
     Dosage: 100MG DAILY
     Route: 065
  5. OMEPRAZOLE [Concomitant]
     Dosage: 20MG DAILY
     Route: 065

REACTIONS (12)
  - Toxicity to various agents [Unknown]
  - Accidental overdose [Unknown]
  - Stomatitis [Unknown]
  - Inappropriate schedule of drug administration [Unknown]
  - Dysphagia [Unknown]
  - Diarrhoea [Unknown]
  - Abdominal pain [Unknown]
  - Hypophagia [Unknown]
  - Skin ulcer [Unknown]
  - General physical condition abnormal [Unknown]
  - Dehydration [Unknown]
  - Bone marrow failure [Unknown]
